FAERS Safety Report 8604314-0 (Version None)
Quarter: 2012Q3

REPORT INFORMATION
  Report Type: 
  Country: None (occurrence: None)
  Receive Date: 20120807
  Receipt Date: 20120725
  Transmission Date: 20120928
  Serious: Yes (Life-Threatening, Hospitalization, Disabling, Other)
  Sender: FDA-Public Use
  Company Number: FK201202095

PATIENT
  Age: 90 Year
  Sex: Female

DRUGS (5)
  1. METOCLOPRAMIDE [Suspect]
     Indication: NAUSEA
     Dosage: 10 MG, 4 PER DAY, ORAL
     Route: 048
     Dates: start: 20120629, end: 20120710
  2. ASTRAMORPH PF [Suspect]
     Indication: ANALGESIC THERAPY
     Dosage: 5 MG, ONE EVERY 2 HOURS, ORAL
     Route: 048
     Dates: start: 20120619, end: 20120620
  3. OXYCODONE HCL [Suspect]
     Indication: ANALGESIC THERAPY
     Dosage: ORAL
     Route: 048
     Dates: start: 20120628, end: 20120705
  4. CLONAZEPAM [Suspect]
     Indication: ANALGESIC THERAPY
     Dosage: 125 UG, ONCE A DAY, ORAL
     Route: 048
     Dates: start: 20120630, end: 20120709
  5. ONDANSETRON [Suspect]
     Indication: NAUSEA
     Dosage: 4 MG, TWO PER DAY, ORAL
     Route: 048
     Dates: start: 20120628

REACTIONS (1)
  - STEVENS-JOHNSON SYNDROME [None]
